FAERS Safety Report 16776728 (Version 1)
Quarter: 2019Q4

REPORT INFORMATION
  Report Type: Spontaneous
  Country: US (occurrence: US)
  Receive Date: 20190905
  Receipt Date: 20190905
  Transmission Date: 20200122
  Serious: Yes (Hospitalization)
  Sender: FDA-Public Use
  Company Number: None

PATIENT
  Age: 61 Year
  Sex: Female

DRUGS (2)
  1. COSENTYX [Suspect]
     Active Substance: SECUKINUMAB
     Indication: PSORIASIS
     Dosage: ?          OTHER FREQUENCY:INJECT ONCE MONTH;?
     Route: 058
     Dates: start: 20190416
  2. COSENTYX [Concomitant]
     Active Substance: SECUKINUMAB
     Dates: start: 20190416

REACTIONS (4)
  - Cervix carcinoma [None]
  - Metastases to kidney [None]
  - Infection [None]
  - Blood potassium increased [None]

NARRATIVE: CASE EVENT DATE: 20190827
